FAERS Safety Report 8589468-7 (Version None)
Quarter: 2012Q2

REPORT INFORMATION
  Report Type: 
  Country: None (occurrence: None)
  Receive Date: 20120423
  Receipt Date: 20100803
  Transmission Date: 20120825
  Serious: Yes (Other)
  Sender: FDA-Public Use
  Company Number: PHHY2010US50797

PATIENT
  Age: 66 Year
  Sex: Female

DRUGS (1)
  1. FEMARA [Suspect]

REACTIONS (2)
  - ARTHRITIS [None]
  - ARTHRALGIA [None]
